FAERS Safety Report 7590947-X (Version None)
Quarter: 2011Q3

REPORT INFORMATION
  Report Type: 
  Country: None (occurrence: None)
  Receive Date: 20110705
  Receipt Date: 20110629
  Transmission Date: 20111222
  Serious: Yes (Hospitalization)
  Sender: FDA-Public Use
  Company Number: PHHY2011IT58036

PATIENT
  Sex: Male

DRUGS (1)
  1. ZOMETA [Suspect]
     Dosage: 4 MG/MONTH
     Route: 042
     Dates: start: 20101201, end: 20110201

REACTIONS (1)
  - OSTEITIS [None]
